FAERS Safety Report 4682502-6 (Version None)
Quarter: 2005Q2

REPORT INFORMATION
  Report Type: 
  Country: None (occurrence: None)
  Receive Date: 20050606
  Receipt Date: 20050509
  Transmission Date: 20051028
  Serious: Yes (Hospitalization)
  Sender: FDA-Public Use
  Company Number: PHHO2005FR07432

PATIENT
  Age: 68 Year
  Weight: 74 kg

DRUGS (2)
  1. RAD001 VS PLACEBO [Suspect]
     Indication: CHEMOTHERAPY MULTIPLE AGENTS SYSTEMIC
     Dosage: 10 MG, QD
     Route: 048
     Dates: start: 20050421, end: 20050502
  2. FEMARA [Suspect]
     Indication: BREAST CANCER
     Dosage: 7.5 MG, QD
     Dates: start: 20050421

REACTIONS (1)
  - MUCOSAL INFLAMMATION [None]
